FAERS Safety Report 5357181-5 (Version None)
Quarter: 2007Q2

REPORT INFORMATION
  Report Type: 
  Country: None (occurrence: None)
  Receive Date: 20070614
  Receipt Date: 20070604
  Transmission Date: 20071010
  Serious: Yes (Other)
  Sender: FDA-Public Use
  Company Number: US-JNJFOC-20070600671

PATIENT
  Sex: Male

DRUGS (7)
  1. DURAGESIC-100 [Suspect]
     Route: 062
  2. DURAGESIC-100 [Suspect]
     Dosage: 2X 25 UG/HR PATCHES
     Route: 062
  3. DURAGESIC-100 [Suspect]
     Dosage: 3X 25 UG/HR PATCHES
     Route: 062
  4. DURAGESIC-100 [Suspect]
     Indication: PAIN
     Route: 062
  5. PERCOCET [Concomitant]
     Indication: PAIN
     Dosage: EVERY 6-8 HOURS
     Route: 048
  6. LOVENOX [Concomitant]
     Indication: ANTICOAGULANT THERAPY
     Route: 058
  7. AMBIEN [Concomitant]
     Dosage: AS NEEDED
     Route: 048

REACTIONS (16)
  - AGGRESSION [None]
  - ANGER [None]
  - BELLIGERENCE [None]
  - CRYING [None]
  - DRUG WITHDRAWAL SYNDROME [None]
  - FEELING ABNORMAL [None]
  - FEELING JITTERY [None]
  - HYPERHIDROSIS [None]
  - INADEQUATE ANALGESIA [None]
  - LOGORRHOEA [None]
  - NERVOUSNESS [None]
  - PHARMACEUTICAL PRODUCT COMPLAINT [None]
  - SUICIDE ATTEMPT [None]
  - THINKING ABNORMAL [None]
  - TREMOR [None]
  - VISION BLURRED [None]
